FAERS Safety Report 14174898 (Version 1)
Quarter: 2017Q4

REPORT INFORMATION
  Report Type: Spontaneous
  Country: GB (occurrence: GB)
  Receive Date: 20171109
  Receipt Date: 20171109
  Transmission Date: 20180321
  Serious: Yes (Other)
  Sender: FDA-Public Use
  Company Number: GB-AMGEN-GBRSP2017167518

PATIENT
  Age: 78 Year
  Sex: Male

DRUGS (1)
  1. ARANESP [Suspect]
     Active Substance: DARBEPOETIN ALFA
     Indication: PRODUCT USED FOR UNKNOWN INDICATION
     Dosage: UNK UNK, QMO
     Route: 065

REACTIONS (4)
  - Haemorrhage [Unknown]
  - Surgery [Unknown]
  - Product storage error [Unknown]
  - Drug dose omission [Unknown]
